FAERS Safety Report 9334807 (Version 1)
Quarter: 2013Q2

REPORT INFORMATION
  Report Type: Spontaneous
  Country: US (occurrence: US)
  Receive Date: 20130606
  Receipt Date: 20130606
  Transmission Date: 20140414
  Serious: No
  Sender: FDA-Public Use
  Company Number: US-009507513-1305USA016628

PATIENT
  Age: 8 Year
  Sex: Female
  Weight: 28.12 kg

DRUGS (3)
  1. CLARITIN REDITABS 12HR [Suspect]
     Indication: RESPIRATORY SYNCYTIAL VIRUS INFECTION
     Dosage: 5 MG, QD
     Route: 048
     Dates: start: 201305
  2. CLARITIN REDITABS 12HR [Suspect]
     Dosage: 5 MG, QD
     Route: 048
     Dates: start: 20130512
  3. ALBUTEROL [Concomitant]
     Indication: PRODUCT USED FOR UNKNOWN INDICATION
     Dosage: UNK, UNKNOWN

REACTIONS (2)
  - Inappropriate schedule of drug administration [Unknown]
  - Off label use [Unknown]
